FAERS Safety Report 6055691-9 (Version None)
Quarter: 2009Q1

REPORT INFORMATION
  Report Type: 
  Country: None (occurrence: None)
  Receive Date: 20090128
  Receipt Date: 20090119
  Transmission Date: 20090719
  Serious: Yes (Hospitalization)
  Sender: FDA-Public Use
  Company Number: IT-WATSON-2008-07526

PATIENT
  Age: 36 Year
  Sex: Female

DRUGS (1)
  1. FERRLECIT [Suspect]
     Indication: IRON DEFICIENCY ANAEMIA
     Dosage: 125 MG/DAY, SINGLE BY IV DRIPPING
     Route: 042
     Dates: start: 20081128, end: 20081128

REACTIONS (4)
  - CHILLS [None]
  - HYPERPYREXIA [None]
  - MALAISE [None]
  - VOMITING [None]
